FAERS Safety Report 9991130 (Version 1)
Quarter: 2014Q1

REPORT INFORMATION
  Report Type: Report from Study
  Country: US (occurrence: US)
  Receive Date: 20140310
  Receipt Date: 20140310
  Transmission Date: 20141002
  Serious: No
  Sender: FDA-Public Use
  Company Number: US-ABBVIE-13P-163-1133984-00

PATIENT
  Age: 64 Year
  Sex: Female
  Weight: 63.56 kg

DRUGS (6)
  1. HUMIRA [Suspect]
     Indication: CROHN^S DISEASE
     Dates: start: 201305
  2. PREDNISONE [Concomitant]
     Indication: CROHN^S DISEASE
     Dates: start: 201307
  3. VALIUM [Concomitant]
     Indication: ANXIETY
  4. TOPROL [Concomitant]
     Indication: ATRIAL FIBRILLATION
  5. FLEXERIL [Concomitant]
     Indication: MYALGIA
  6. ULTRAM [Concomitant]
     Indication: PAIN

REACTIONS (4)
  - Arthralgia [Not Recovered/Not Resolved]
  - Arthralgia [Not Recovered/Not Resolved]
  - Back pain [Not Recovered/Not Resolved]
  - Abdominal distension [Not Recovered/Not Resolved]
